FAERS Safety Report 7037209-7 (Version None)
Quarter: 2010Q4

REPORT INFORMATION
  Report Type: 
  Country: None (occurrence: None)
  Receive Date: 20101011
  Receipt Date: 20100928
  Transmission Date: 20110411
  Serious: Yes (Other)
  Sender: FDA-Public Use
  Company Number: DE-ROCHE-711723

PATIENT
  Sex: Female
  Weight: 67 kg

DRUGS (4)
  1. BONIVA [Suspect]
     Indication: OSTEOPOROSIS
     Route: 042
     Dates: start: 20090901
  2. BONIVA [Suspect]
     Route: 042
     Dates: start: 20091126
  3. MARCUMAR [Concomitant]
     Indication: ATRIAL FIBRILLATION
     Route: 048
     Dates: start: 20000101
  4. DILTIAZEM [Concomitant]
     Route: 048
     Dates: start: 20020101

REACTIONS (3)
  - ANTINUCLEAR ANTIBODY INCREASED [None]
  - ARTHRALGIA [None]
  - RASH [None]
